FAERS Safety Report 5230836-9 (Version None)
Quarter: 2007Q1

REPORT INFORMATION
  Report Type: 
  Country: None (occurrence: None)
  Receive Date: 20070205
  Receipt Date: 20070205
  Transmission Date: 20070707
  Serious: Yes (Other)
  Sender: FDA-Public Use
  Company Number: None

PATIENT
  Age: 59 Year
  Sex: Female
  Weight: 69.8539 kg

DRUGS (12)
  1. XELODA [Suspect]
     Indication: BREAST CANCER
     Dosage: 825MG/M2/BID14DAYS/ORAL
     Route: 048
     Dates: start: 20070102, end: 20070108
  2. PACLITAXEL [Suspect]
     Indication: BREAST CANCER
     Dosage: 260 MG/M2Q 21 DAYS/IV
     Route: 042
     Dates: start: 20070102, end: 20070102
  3. HYDROXYCHLOROQUINE SULFATE [Concomitant]
  4. COZAAR [Concomitant]
  5. LUNESTA [Concomitant]
  6. PROCHLORPERAZINE [Concomitant]
  7. GABAPENTIN [Concomitant]
  8. ZOLOFT [Concomitant]
  9. PRANDIN [Concomitant]
  10. VICODIN [Concomitant]
  11. INSULIN [Concomitant]
  12. MINOCYCLINE HCL [Concomitant]

REACTIONS (4)
  - ASTHENIA [None]
  - BALANCE DISORDER [None]
  - DIZZINESS POSTURAL [None]
  - ORTHOSTATIC HYPOTENSION [None]
